FAERS Safety Report 21134763 (Version 3)
Quarter: 2022Q4

REPORT INFORMATION
  Report Type: Report from Study
  Country: US (occurrence: US)
  Receive Date: 20220727
  Receipt Date: 20221213
  Transmission Date: 20230113
  Serious: No
  Sender: FDA-Public Use
  Company Number: US-NOVARTISTESTPH-NVSC2022US164479

PATIENT
  Age: 7 Year
  Sex: Male

DRUGS (4)
  1. VIJOICE [Suspect]
     Active Substance: ALPELISIB
     Indication: PIK3CA related overgrowth spectrum
     Dosage: 50 MG
     Route: 065
     Dates: start: 201905
  2. VIJOICE [Suspect]
     Active Substance: ALPELISIB
     Dosage: 100 MG
     Route: 065
     Dates: start: 202107
  3. VIJOICE [Suspect]
     Active Substance: ALPELISIB
     Dosage: 125 MG, QD
     Route: 065
  4. VIJOICE [Suspect]
     Active Substance: ALPELISIB
     Dosage: 125 MG, QD
     Route: 048
     Dates: start: 20220722, end: 20220908

REACTIONS (5)
  - Skin induration [Recovering/Resolving]
  - Morphoea [Recovering/Resolving]
  - Diarrhoea [Unknown]
  - Rash erythematous [Unknown]
  - Off label use [Unknown]

NARRATIVE: CASE EVENT DATE: 20220722
